FAERS Safety Report 5454607-3 (Version None)
Quarter: 2007Q3

REPORT INFORMATION
  Report Type: 
  Country: None (occurrence: None)
  Receive Date: 20070917
  Receipt Date: 20070531
  Transmission Date: 20080115
  Serious: Yes (Other)
  Sender: FDA-Public Use
  Company Number: US-ASTRAZENECA-2006UW11689

PATIENT
  Age: 632 Month
  Sex: Female
  Weight: 95.5 kg

DRUGS (4)
  1. SEROQUEL [Suspect]
     Indication: BIPOLAR DISORDER
     Dosage: 500 - 1000 MG
     Route: 048
     Dates: start: 20040101
  2. SEROQUEL [Suspect]
     Indication: DEPRESSION
     Dosage: 500 - 1000 MG
     Route: 048
     Dates: start: 20040101
  3. SEROQUEL [Suspect]
     Indication: ANXIETY
     Dosage: 500 - 1000 MG
     Route: 048
     Dates: start: 20040101
  4. CLOZARIL [Concomitant]
     Dates: start: 20030101

REACTIONS (3)
  - CEREBROVASCULAR ACCIDENT [None]
  - DIABETES MELLITUS [None]
  - PANCREATITIS [None]
